FAERS Safety Report 8516494 (Version 3)
Quarter: 2013Q3

REPORT INFORMATION
  Report Type: Spontaneous
  Country: US (occurrence: US)
  Receive Date: 20120417
  Receipt Date: 20130722
  Transmission Date: 20140515
  Serious: Yes (Disabling)
  Sender: FDA-Public Use
  Company Number: US-ASTRAZENECA-2011SE41547

PATIENT
  Age: 60 Year
  Sex: Female
  Weight: 69.4 kg

DRUGS (18)
  1. NEXIUM [Suspect]
     Indication: GASTROOESOPHAGEAL REFLUX DISEASE
     Dosage: ONCE A DAY
     Route: 048
     Dates: start: 2002
  2. NEXIUM [Suspect]
     Indication: DYSPEPSIA
     Dosage: ONCE A DAY
     Route: 048
     Dates: start: 2002
  3. NEXIUM [Suspect]
     Indication: GASTROINTESTINAL DISORDER
     Dosage: ONCE A DAY
     Route: 048
     Dates: start: 2002
  4. NEXIUM [Suspect]
     Indication: GASTROOESOPHAGEAL REFLUX DISEASE
     Dosage: GENERIC
     Route: 048
     Dates: start: 2002
  5. NEXIUM [Suspect]
     Indication: DYSPEPSIA
     Dosage: GENERIC
     Route: 048
     Dates: start: 2002
  6. NEXIUM [Suspect]
     Indication: GASTROINTESTINAL DISORDER
     Dosage: GENERIC
     Route: 048
     Dates: start: 2002
  7. PRILOSEC [Suspect]
     Route: 048
  8. PEPCID [Concomitant]
     Indication: ILL-DEFINED DISORDER
  9. TAGAMET [Concomitant]
     Indication: ILL-DEFINED DISORDER
  10. ZANTAC [Concomitant]
     Indication: ILL-DEFINED DISORDER
  11. TUMS [Concomitant]
     Indication: ILL-DEFINED DISORDER
  12. ROLAIDS [Concomitant]
     Indication: ILL-DEFINED DISORDER
  13. PEPTO-BISMOL [Concomitant]
     Indication: ILL-DEFINED DISORDER
  14. MILK OF MAGNESIA [Concomitant]
     Indication: ILL-DEFINED DISORDER
  15. ABILIFY [Concomitant]
  16. BLOOD PRESSURE PILLS [Concomitant]
  17. NAPROXEN [Concomitant]
     Indication: PAIN
  18. VICODIN [Concomitant]
     Indication: PAIN

REACTIONS (8)
  - Joint injury [Unknown]
  - Bone loss [Unknown]
  - Osteoporosis [Unknown]
  - Bone density decreased [Unknown]
  - Multiple fractures [Unknown]
  - Arthritis [Unknown]
  - Emotional distress [Unknown]
  - Bipolar I disorder [Unknown]
